FAERS Safety Report 7988651-9 (Version None)
Quarter: 2011Q4

REPORT INFORMATION
  Report Type: 
  Country: None (occurrence: None)
  Receive Date: 20111218
  Receipt Date: 20111208
  Transmission Date: 20120403
  Serious: Yes (Other)
  Sender: FDA-Public Use
  Company Number: US-ASTRAZENECA-2011SE74666

PATIENT
  Sex: Male

DRUGS (5)
  1. PRAVACHOL [Suspect]
     Route: 065
  2. ASPIRIN [Suspect]
     Route: 065
  3. NEXIUM [Suspect]
     Route: 048
  4. LEVOXYL [Suspect]
     Route: 065
  5. ATENOLOL [Suspect]
     Route: 048

REACTIONS (1)
  - THROAT CANCER [None]
